FAERS Safety Report 8103445-1 (Version None)
Quarter: 2012Q1

REPORT INFORMATION
  Report Type: 
  Country: None (occurrence: None)
  Receive Date: 20120201
  Receipt Date: 20120120
  Transmission Date: 20120608
  Serious: Yes (Other)
  Sender: FDA-Public Use
  Company Number: PHHY2012FR006446

PATIENT
  Age: 73 Year
  Sex: Male

DRUGS (3)
  1. ASPIRIN [Concomitant]
  2. VALSARTAN [Suspect]
     Indication: HYPERTENSION
     Dosage: 1 DF, DAILY
  3. ALLOPURINOL [Concomitant]

REACTIONS (1)
  - HAEMATOSPERMIA [None]
